FAERS Safety Report 6552207-5 (Version None)
Quarter: 2010Q1

REPORT INFORMATION
  Report Type: 
  Country: None (occurrence: None)
  Receive Date: 20100126
  Receipt Date: 20100115
  Transmission Date: 20100710
  Serious: Yes (Other)
  Sender: FDA-Public Use
  Company Number: JP-MERCK-1001USA01852

PATIENT
  Age: 85 Year
  Sex: Female

DRUGS (3)
  1. JANUVIA [Suspect]
     Indication: TYPE 2 DIABETES MELLITUS
     Route: 048
     Dates: end: 20100113
  2. AMARYL [Suspect]
     Route: 048
  3. ACTOS [Concomitant]
     Route: 065

REACTIONS (1)
  - HYPOGLYCAEMIA [None]
